FAERS Safety Report 7656937-3 (Version None)
Quarter: 2011Q3

REPORT INFORMATION
  Report Type: 
  Country: None (occurrence: None)
  Receive Date: 20110804
  Receipt Date: 20110802
  Transmission Date: 20111222
  Serious: Yes (Other)
  Sender: FDA-Public Use
  Company Number: JP-PFIZER INC-2011158741

PATIENT
  Sex: Male

DRUGS (1)
  1. LYRICA [Suspect]
     Indication: RADICULOPATHY
     Dosage: 150 MG DAILY
     Route: 048
     Dates: start: 20110201

REACTIONS (4)
  - SOMNOLENCE [None]
  - DIZZINESS [None]
  - DEAFNESS [None]
  - NECK PAIN [None]
